FAERS Safety Report 24154322 (Version 1)
Quarter: 2024Q3

REPORT INFORMATION
  Report Type: Spontaneous
  Country: BR (occurrence: BR)
  Receive Date: 20240730
  Receipt Date: 20240730
  Transmission Date: 20241017
  Serious: Yes (Other)
  Sender: MERCK
  Company Number: BR-009507513-2304BRA008619

PATIENT
  Age: 44 Year
  Sex: Female
  Weight: 100 kg

DRUGS (17)
  1. TEMODAL [Suspect]
     Active Substance: TEMOZOLOMIDE
     Indication: Brain neoplasm
     Dosage: UNK
     Dates: start: 2019
  2. TEMODAL [Suspect]
     Active Substance: TEMOZOLOMIDE
     Dosage: TOTAL DOSE: 380 MG PER 5 DAYS EVERY 28 DAYS
     Route: 048
     Dates: start: 202211, end: 202304
  3. TEMODAL [Suspect]
     Active Substance: TEMOZOLOMIDE
     Dosage: TOTAL DOSE: 380 MG PER 5 DAYS EVERY 28 DAYS
     Route: 048
     Dates: start: 2023, end: 202307
  4. TEMODAL [Suspect]
     Active Substance: TEMOZOLOMIDE
     Dosage: TOTAL DOSE: 320 MG , DURING 5 DAYS , EVERY 28 DAYS
     Route: 048
     Dates: start: 202307, end: 202310
  5. TEMODAL [Suspect]
     Active Substance: TEMOZOLOMIDE
     Dosage: 80 MILLIGRAM, QD
     Dates: start: 202406
  6. TEMODAL [Suspect]
     Active Substance: TEMOZOLOMIDE
     Indication: Brain neoplasm
     Dosage: TOTAL DOSE: 380 MG PER 5 DAYS EVERY 28 DAYS
     Route: 048
     Dates: start: 202211, end: 202304
  7. TEMODAL [Suspect]
     Active Substance: TEMOZOLOMIDE
     Dosage: TOTAL DOSE: 380 MG PER 5 DAYS EVERY 28 DAYS
     Route: 048
     Dates: start: 2023
  8. TEMODAL [Suspect]
     Active Substance: TEMOZOLOMIDE
     Dosage: TOTAL DOSE: 320 MG PER 5 DAYS EVERY 28 DAYS
     Route: 048
     Dates: start: 202307, end: 202310
  9. TEMODAL [Suspect]
     Active Substance: TEMOZOLOMIDE
     Indication: Brain neoplasm
     Dosage: TOTAL 320 MG PER 5 DAYS EVERY 28 DAYS
     Route: 048
     Dates: start: 202307, end: 202310
  10. PREGABALIN [Concomitant]
     Active Substance: PREGABALIN
     Indication: Seizure prophylaxis
     Dosage: 150 MILLIGRAM, QD
     Route: 048
  11. MINERALS\VITAMINS [Concomitant]
     Active Substance: MINERALS\VITAMINS
     Dosage: 1 DOSAGE FORM, QD
  12. SERTRALINE [Concomitant]
     Active Substance: SERTRALINE HYDROCHLORIDE
     Dosage: 50 MILLIGRAM, QD
  13. DEXAMETHASONE [Concomitant]
     Active Substance: DEXAMETHASONE
     Dosage: 4 MG EVERY 12 H
  14. DIPYRONE [Concomitant]
     Active Substance: DIPYRONE
     Dosage: IN CASE OF PAIN
  15. CARBOHYDRATES\FATTY ACIDS\MINERALS\PROTEIN\VITAMINS [Concomitant]
     Active Substance: CARBOHYDRATES\FATTY ACIDS\MINERALS\PROTEIN\VITAMINS
     Dosage: 1100 MILLILITER A DAY
  16. OMEPRAZOLE [Concomitant]
     Active Substance: OMEPRAZOLE
     Dosage: UNK, QD
  17. ONDANSETRON [Concomitant]
     Active Substance: ONDANSETRON
     Dosage: 8 MILLIGRAM, QD

REACTIONS (10)
  - Malignant neoplasm progression [Unknown]
  - Nodule [Unknown]
  - Dengue fever [Not Recovered/Not Resolved]
  - Weight decreased [Unknown]
  - Nausea [Unknown]
  - Vomiting [Unknown]
  - Incorrect dose administered [Unknown]
  - Nausea [Not Recovered/Not Resolved]
  - Vomiting [Not Recovered/Not Resolved]
  - Weight decreased [Unknown]

NARRATIVE: CASE EVENT DATE: 20221101
